FAERS Safety Report 10186033 (Version 3)
Quarter: 2014Q2

REPORT INFORMATION
  Report Type: Spontaneous
  Country: CO (occurrence: CO)
  Receive Date: 20140521
  Receipt Date: 20140624
  Transmission Date: 20141212
  Serious: Yes (Other)
  Sender: FDA-Public Use
  Company Number: CO-VERTEX PHARMACEUTICALS INC-2014-001848

PATIENT
  Age: 37 Year
  Sex: Female
  Weight: 64 kg

DRUGS (3)
  1. INCIVO [Suspect]
     Indication: HEPATITIS C
     Dosage: 375 MG, UNK
     Route: 048
     Dates: start: 20140321, end: 20140613
  2. RIBAVIRIN [Suspect]
     Indication: HEPATITIS C
     Dosage: 200 MG, UNK
     Route: 048
     Dates: start: 20140321
  3. INTERFERON [Concomitant]
     Indication: HEPATITIS C
     Dosage: 180 ?G, UNK
     Route: 058
     Dates: start: 20140321

REACTIONS (3)
  - Haemoglobin abnormal [Unknown]
  - Cough [Unknown]
  - Pruritus [Unknown]
